FAERS Safety Report 7292369-8 (Version None)
Quarter: 2011Q1

REPORT INFORMATION
  Report Type: 
  Country: None (occurrence: None)
  Receive Date: 20110215
  Receipt Date: 20110201
  Transmission Date: 20110831
  Serious: Yes (Other)
  Sender: FDA-Public Use
  Company Number: IN-MYLANLABS-2011S1002281

PATIENT
  Age: 20 Year
  Sex: Female

DRUGS (3)
  1. RISPERDONE [Concomitant]
     Indication: SCHIZOPHRENIA
     Route: 065
     Dates: start: 20071101
  2. TRIHEXYPHENIDYL [Concomitant]
     Indication: SCHIZOPHRENIA
     Route: 065
     Dates: start: 20071101
  3. METFORMIN [Suspect]
     Indication: SCHIZOPHRENIA
     Route: 065
     Dates: start: 20080501

REACTIONS (1)
  - PSYCHOTIC DISORDER [None]
